FAERS Safety Report 6529252-9 (Version None)
Quarter: 2010Q1

REPORT INFORMATION
  Report Type: 
  Country: None (occurrence: None)
  Receive Date: 20100107
  Receipt Date: 20100104
  Transmission Date: 20100710
  Serious: Yes (Other)
  Sender: FDA-Public Use
  Company Number: BR-ROCHE-677566

PATIENT
  Sex: Female
  Weight: 57 kg

DRUGS (2)
  1. RIVOTRIL [Suspect]
     Indication: SLEEP DISORDER THERAPY
     Dosage: DOSE: 3-5 DROPS A  DAY, STRENGTH 2.5 MG/ML
     Route: 048
     Dates: start: 20000101
  2. PAROXETINE HCL [Concomitant]
     Indication: DEPRESSION
     Route: 048
     Dates: start: 20000101

REACTIONS (4)
  - DRUG INEFFECTIVE [None]
  - INSOMNIA [None]
  - INTERVERTEBRAL DISC DISPLACEMENT [None]
  - NO ADVERSE EVENT [None]
